FAERS Safety Report 6233291-5 (Version None)
Quarter: 2009Q2

REPORT INFORMATION
  Report Type: 
  Country: None (occurrence: None)
  Receive Date: 20090617
  Receipt Date: 20090603
  Transmission Date: 20091009
  Serious: Yes (Hospitalization)
  Sender: FDA-Public Use
  Company Number: US-MERCK-0906USA01985

PATIENT
  Age: 81 Year
  Sex: Female

DRUGS (3)
  1. TIMOPTIC [Suspect]
     Indication: ANGLE CLOSURE GLAUCOMA
     Route: 047
  2. BRIMONIDINE TARTRATE [Concomitant]
     Route: 047
  3. MANNITOL [Concomitant]
     Route: 042

REACTIONS (1)
  - DRUG INEFFECTIVE [None]
